FAERS Safety Report 25273260 (Version 2)
Quarter: 2025Q2

REPORT INFORMATION
  Report Type: Report from Study
  Country: US (occurrence: US)
  Receive Date: 20250506
  Receipt Date: 20250523
  Transmission Date: 20250717
  Serious: Yes (Death, Other)
  Sender: OTSUKA
  Company Number: US-MMM-Otsuka-BACGFWRH

PATIENT
  Age: 64 Year
  Sex: Female

DRUGS (1)
  1. BREXPIPRAZOLE [Suspect]
     Active Substance: BREXPIPRAZOLE
     Indication: Product used for unknown indication
     Route: 065

REACTIONS (3)
  - Septic shock [Fatal]
  - Arthritis bacterial [Fatal]
  - Joint arthroplasty [Unknown]

NARRATIVE: CASE EVENT DATE: 20240913
